FAERS Safety Report 8071438 (Version 4)
Quarter: 2012Q4

REPORT INFORMATION
  Report Type: 
  Country: US (occurrence: US)
  Receive Date: 20110805
  Receipt Date: 20121221
  Transmission Date: 20130627
  Serious: Yes (Hospitalization)
  Sender: FDA-Public Use
  Company Number: US-BAYER-2011-067904

PATIENT
  Age: 28 Year
  Sex: Female

DRUGS (5)
  1. YAZ [Suspect]
     Indication: CONTRACEPTION
     Dosage: UNK
     Dates: start: 20080601, end: 20080729
  2. XANAX [Concomitant]
  3. ATIVAN [Concomitant]
  4. EFFEXOR [Concomitant]
  5. VICODIN [Concomitant]

REACTIONS (17)
  - Pulmonary embolism [Recovered/Resolved]
  - Pain [Recovered/Resolved]
  - General physical health deterioration [None]
  - General physical health deterioration [None]
  - Anxiety [None]
  - Emotional distress [None]
  - Mental disorder [None]
  - Drug dependence [None]
  - Chest pain [Recovered/Resolved]
  - Choking sensation [Recovered/Resolved]
  - Dizziness [Recovered/Resolved]
  - Respiratory rate increased [Recovered/Resolved]
  - Hypoaesthesia [Recovered/Resolved]
  - Headache [None]
  - Photophobia [None]
  - Vision blurred [None]
  - Depression [None]
